FAERS Safety Report 4677543-9 (Version None)
Quarter: 2005Q2

REPORT INFORMATION
  Report Type: 
  Country: None (occurrence: None)
  Receive Date: 20050527
  Receipt Date: 20050527
  Transmission Date: 20051028
  Serious: Yes (Congenital Anomaly, Other)
  Sender: FDA-Public Use
  Company Number: None

PATIENT
  Age: 32 Year
  Sex: Male
  Weight: 86.1834 kg

DRUGS (2)
  1. PAXIL [Suspect]
     Indication: ANXIETY
     Dosage: 40MG DAY ORAL
     Route: 048
     Dates: start: 20050410, end: 20050520
  2. PAXIL [Suspect]
     Indication: DEPRESSION
     Dosage: 40MG DAY ORAL
     Route: 048
     Dates: start: 20050410, end: 20050520

REACTIONS (4)
  - DRUG WITHDRAWAL SYNDROME [None]
  - IRRITABILITY [None]
  - NIGHTMARE [None]
  - PARANOIA [None]
